FAERS Safety Report 23618802 (Version 1)
Quarter: 2024Q1

REPORT INFORMATION
  Report Type: Spontaneous
  Country: TW (occurrence: TW)
  Receive Date: 20240311
  Receipt Date: 20240311
  Transmission Date: 20240409
  Serious: Yes (Death, Other)
  Sender: FDA-Public Use
  Company Number: TW-PFIZER INC-PV202400033147

PATIENT

DRUGS (3)
  1. IBRANCE [Suspect]
     Active Substance: PALBOCICLIB
     Dosage: 125 MG, CYCLIC (21 CAPS 21 DAY)
     Route: 048
     Dates: start: 20210826
  2. IBRANCE [Suspect]
     Active Substance: PALBOCICLIB
     Dosage: UNK
     Route: 048
     Dates: start: 20220514
  3. IBRANCE [Suspect]
     Active Substance: PALBOCICLIB
     Dosage: 100MG (7 CAPS 14 DAY)
     Route: 048
     Dates: start: 20221105

REACTIONS (1)
  - Death [Fatal]
